FAERS Safety Report 18461909 (Version 1)
Quarter: 2020Q4

REPORT INFORMATION
  Report Type: Spontaneous
  Country: US (occurrence: US)
  Receive Date: 20201103
  Receipt Date: 20201103
  Transmission Date: 20210114
  Serious: Yes (Hospitalization)
  Sender: FDA-Public Use
  Company Number: None

PATIENT
  Sex: Male
  Weight: 93.3 kg

DRUGS (6)
  1. CYCLOPHOSPHAMIDE. [Suspect]
     Active Substance: CYCLOPHOSPHAMIDE
  2. METHOTREXATE. [Concomitant]
     Active Substance: METHOTREXATE
  3. CYTARABINE. [Concomitant]
     Active Substance: CYTARABINE
  4. ONCASPAR [Concomitant]
     Active Substance: PEGASPARGASE
  5. VINCRISTINE SULFATE. [Concomitant]
     Active Substance: VINCRISTINE SULFATE
  6. MERCAPTOPURINE. [Concomitant]
     Active Substance: MERCAPTOPURINE

REACTIONS (8)
  - Hemiparesis [None]
  - Facial paralysis [None]
  - Neuropathy peripheral [None]
  - Therapy cessation [None]
  - Dysarthria [None]
  - Leukoencephalopathy [None]
  - Vertebral artery dissection [None]
  - Peroneal nerve palsy [None]

NARRATIVE: CASE EVENT DATE: 20201022
